FAERS Safety Report 8616216-4 (Version None)
Quarter: 2012Q3

REPORT INFORMATION
  Report Type: 
  Country: None (occurrence: None)
  Receive Date: 20120823
  Receipt Date: 20120814
  Transmission Date: 20120928
  Serious: Yes (Death)
  Sender: FDA-Public Use
  Company Number: US-PURDUE-USA-2012-0087289

PATIENT
  Sex: Female

DRUGS (1)
  1. COLACE CAPSULES [Suspect]
     Indication: PRODUCT USED FOR UNKNOWN INDICATION
     Dosage: 100 MG AT 4 PM AND ONE AT 5:30 PM
     Dates: start: 20120509

REACTIONS (2)
  - ABDOMINAL PAIN UPPER [None]
  - DEATH [None]
